FAERS Safety Report 15640087 (Version 3)
Quarter: 2020Q2

REPORT INFORMATION
  Report Type: Report from Study
  Country: AU (occurrence: AU)
  Receive Date: 20181120
  Receipt Date: 20200515
  Transmission Date: 20200713
  Serious: Yes (Hospitalization, Other)
  Sender: FDA-Public Use
  Company Number: AU-JNJFOC-20181101422

PATIENT
  Sex: Female

DRUGS (2)
  1. STELARA [Suspect]
     Active Substance: USTEKINUMAB
     Indication: CROHN^S DISEASE
     Route: 042
     Dates: end: 20180914
  2. STELARA [Suspect]
     Active Substance: USTEKINUMAB
     Route: 058

REACTIONS (3)
  - Inappropriate schedule of product administration [Unknown]
  - Anal abscess [Recovered/Resolved]
  - Gastrointestinal infection [Recovered/Resolved]
